FAERS Safety Report 5672132-1 (Version None)
Quarter: 2008Q1

REPORT INFORMATION
  Report Type: 
  Country: None (occurrence: None)
  Receive Date: 20080319
  Receipt Date: 20080313
  Transmission Date: 20080703
  Serious: Yes (Hospitalization)
  Sender: FDA-Public Use
  Company Number: JP-NOVOPROD-273119

PATIENT
  Age: 49 Year
  Sex: Female
  Weight: 80 kg

DRUGS (5)
  1. LEVEMIR [Suspect]
     Indication: TYPE 2 DIABETES MELLITUS
     Dosage: 24 U, QD
     Route: 058
     Dates: start: 20080221, end: 20080301
  2. BLOPRESS [Concomitant]
     Indication: HYPERTENSION
     Dosage: 12 MG, QD
     Route: 048
  3. GLYCORAN [Concomitant]
     Indication: TYPE 2 DIABETES MELLITUS
     Dosage: 750 MG, QD
  4. NOVORAPID 30 MIX CHU PENFILL [Concomitant]
     Indication: TYPE 2 DIABETES MELLITUS
  5. PENFILL R CHU [Concomitant]
     Indication: TYPE 2 DIABETES MELLITUS
     Dosage: 6 U, QD

REACTIONS (4)
  - DIZZINESS [None]
  - MYALGIA [None]
  - NAUSEA [None]
  - NYSTAGMUS [None]
